FAERS Safety Report 18443786 (Version 1)
Quarter: 2020Q4

REPORT INFORMATION
  Report Type: Report from Study
  Country: None (occurrence: US)
  Receive Date: 20201029
  Receipt Date: 20201029
  Transmission Date: 20210114
  Serious: Yes (Hospitalization, Other)
  Sender: FDA-Public Use
  Company Number: US-ABBVIE-20K-163-3555512-00

PATIENT
  Sex: Female

DRUGS (1)
  1. HUMIRA [Suspect]
     Active Substance: ADALIMUMAB
     Indication: PSORIATIC ARTHROPATHY
     Dosage: CITRATE FREE
     Route: 058

REACTIONS (10)
  - Illness [Unknown]
  - Pneumonia [Recovering/Resolving]
  - Skin exfoliation [Not Recovered/Not Resolved]
  - Skin burning sensation [Not Recovered/Not Resolved]
  - Cardiac infection [Unknown]
  - Drug hypersensitivity [Unknown]
  - Haemoglobin decreased [Unknown]
  - Sepsis [Not Recovered/Not Resolved]
  - Stevens-Johnson syndrome [Unknown]
  - Blood disorder [Unknown]
